FAERS Safety Report 7330255-5 (Version None)
Quarter: 2011Q1

REPORT INFORMATION
  Report Type: 
  Country: None (occurrence: None)
  Receive Date: 20110303
  Receipt Date: 20110225
  Transmission Date: 20110831
  Serious: Yes (Life-Threatening, Hospitalization, Other)
  Sender: FDA-Public Use
  Company Number: IT-BRISTOL-MYERS SQUIBB COMPANY-15569809

PATIENT
  Age: 79 Year
  Sex: Male

DRUGS (8)
  1. KARVEA TABS 300 MG [Suspect]
     Dosage: 1 DF: 1 UNIT
     Dates: start: 20100101, end: 20100611
  2. PRETERAX [Suspect]
     Dosage: PRETERAX 2.5MG+0.625MG TABS , 1 UNIT/DAY.
     Dates: start: 20100101, end: 20100611
  3. HUMULIN R [Concomitant]
  4. NOVONORM [Concomitant]
  5. IMIPENEM [Suspect]
  6. METOPROLOL TARTRATE [Suspect]
     Dates: start: 20100101, end: 20100611
  7. PERMIXON [Concomitant]
  8. ASA [Suspect]
     Route: 048
     Dates: start: 20100101, end: 20100611

REACTIONS (5)
  - RESPIRATORY FAILURE [None]
  - ASTHENIA [None]
  - RENAL FAILURE ACUTE [None]
  - DRUG ADMINISTRATION ERROR [None]
  - HEPATIC FAILURE [None]
